FAERS Safety Report 14783831 (Version 4)
Quarter: 2019Q2

REPORT INFORMATION
  Report Type: Spontaneous
  Country: US (occurrence: US)
  Receive Date: 20180420
  Receipt Date: 20190502
  Transmission Date: 20190711
  Serious: Yes (Other)
  Sender: FDA-Public Use
  Company Number: US-ASTRAZENECA-2018SE48831

PATIENT
  Age: 19672 Day
  Sex: Male
  Weight: 86.2 kg

DRUGS (52)
  1. PREVACID [Suspect]
     Active Substance: LANSOPRAZOLE
     Route: 048
     Dates: start: 200201, end: 201612
  2. IPRATROPIUM ALBUTEROL [Concomitant]
     Active Substance: ALBUTEROL\IPRATROPIUM
  3. CYCLOBENZAPRINE. [Concomitant]
     Active Substance: CYCLOBENZAPRINE
  4. FLUOCINONIDE. [Concomitant]
     Active Substance: FLUOCINONIDE
  5. NORTRIPTYLINE [Concomitant]
     Active Substance: NORTRIPTYLINE
  6. ACETAMINOPHEN. [Concomitant]
     Active Substance: ACETAMINOPHEN
  7. PAXIL [Concomitant]
     Active Substance: PAROXETINE HYDROCHLORIDE
  8. NEXIUM [Suspect]
     Active Substance: ESOMEPRAZOLE MAGNESIUM
     Route: 048
     Dates: start: 200201, end: 201612
  9. PERCOCET [Concomitant]
     Active Substance: ACETAMINOPHEN\OXYCODONE HYDROCHLORIDE
  10. ENOXAPARIN [Concomitant]
     Active Substance: ENOXAPARIN
  11. LIDOCAINE. [Concomitant]
     Active Substance: LIDOCAINE
  12. METHYLPREDNISOLONE. [Concomitant]
     Active Substance: METHYLPREDNISOLONE
  13. RANITIDINE. [Concomitant]
     Active Substance: RANITIDINE
  14. IBUPROFEN. [Concomitant]
     Active Substance: IBUPROFEN
  15. NORTRIPTYLINE [Concomitant]
     Active Substance: NORTRIPTYLINE
  16. METHOCARBAMOL. [Concomitant]
     Active Substance: METHOCARBAMOL
  17. CLONAZEPAM. [Concomitant]
     Active Substance: CLONAZEPAM
  18. FLUCONAZOLE. [Concomitant]
     Active Substance: FLUCONAZOLE
  19. DULOXETINE. [Concomitant]
     Active Substance: DULOXETINE
  20. PRILOSEC [Suspect]
     Active Substance: OMEPRAZOLE MAGNESIUM
     Indication: GASTROOESOPHAGEAL REFLUX DISEASE
     Route: 048
     Dates: start: 20130101, end: 20161231
  21. PRILOSEC [Suspect]
     Active Substance: OMEPRAZOLE MAGNESIUM
     Indication: GASTROOESOPHAGEAL REFLUX DISEASE
     Dosage: GENERIC
     Route: 065
     Dates: start: 20110615, end: 20160706
  22. DEXILANT [Suspect]
     Active Substance: DEXLANSOPRAZOLE
     Route: 048
     Dates: start: 200201, end: 201612
  23. FAMOTIDINE. [Concomitant]
     Active Substance: FAMOTIDINE
  24. AZITHROMYCIN ANHYDROUS. [Concomitant]
     Active Substance: AZITHROMYCIN ANHYDROUS
  25. MESNA. [Concomitant]
     Active Substance: MESNA
  26. LOVENOX [Concomitant]
     Active Substance: ENOXAPARIN SODIUM
  27. PRILOSEC [Suspect]
     Active Substance: OMEPRAZOLE MAGNESIUM
     Indication: GASTROOESOPHAGEAL REFLUX DISEASE
     Route: 048
     Dates: start: 200201, end: 201612
  28. PROTONIX [Suspect]
     Active Substance: PANTOPRAZOLE SODIUM
     Route: 048
     Dates: start: 200201, end: 201612
  29. IBUPROFEN. [Concomitant]
     Active Substance: IBUPROFEN
  30. TRAZODONE [Concomitant]
     Active Substance: TRAZODONE HYDROCHLORIDE
  31. PREDNISONE. [Concomitant]
     Active Substance: PREDNISONE
  32. METHADONE [Concomitant]
     Active Substance: METHADONE HYDROCHLORIDE
  33. WARFARIN [Concomitant]
     Active Substance: WARFARIN
  34. ZOLPIDEM [Concomitant]
     Active Substance: ZOLPIDEM\ZOLPIDEM TARTRATE
  35. PAROXETINE. [Concomitant]
     Active Substance: PAROXETINE
  36. METHADONE [Concomitant]
     Active Substance: METHADONE HYDROCHLORIDE
  37. AZATHIOPRINE. [Concomitant]
     Active Substance: AZATHIOPRINE
  38. COUMADIN [Concomitant]
     Active Substance: WARFARIN SODIUM
  39. VENLAFAXINE [Concomitant]
     Active Substance: VENLAFAXINE HYDROCHLORIDE
  40. RITUXAN [Concomitant]
     Active Substance: RITUXIMAB
  41. PROMETHAZINE [Concomitant]
     Active Substance: PROMETHAZINE\PROMETHAZINE HYDROCHLORIDE
  42. GABAPENTIN. [Concomitant]
     Active Substance: GABAPENTIN
  43. NICOTINE. [Concomitant]
     Active Substance: NICOTINE
  44. CLOTRIMAZOLE. [Concomitant]
     Active Substance: CLOTRIMAZOLE
  45. NEXIUM 24HR [Suspect]
     Active Substance: ESOMEPRAZOLE MAGNESIUM
     Route: 048
     Dates: start: 200201, end: 201612
  46. PRILOSEC [Suspect]
     Active Substance: OMEPRAZOLE MAGNESIUM
     Indication: GASTROOESOPHAGEAL REFLUX DISEASE
     Route: 048
     Dates: start: 20130521, end: 20170113
  47. PRILOSEC OTC [Suspect]
     Active Substance: OMEPRAZOLE MAGNESIUM
     Route: 048
     Dates: start: 200201, end: 201612
  48. PREVACID 24 HR [Suspect]
     Active Substance: LANSOPRAZOLE
     Route: 048
     Dates: start: 200201, end: 201612
  49. MELOXICAM. [Concomitant]
     Active Substance: MELOXICAM
  50. ATORVASTATIN [Concomitant]
     Active Substance: ATORVASTATIN
  51. PRAVASTATIN. [Concomitant]
     Active Substance: PRAVASTATIN
  52. PHENYLEPHRINE [Concomitant]
     Active Substance: PHENYLEPHRINE\PHENYLEPHRINE HYDROCHLORIDE

REACTIONS (4)
  - Renal injury [Unknown]
  - Nephritic syndrome [Unknown]
  - Chronic kidney disease [Not Recovered/Not Resolved]
  - Tubulointerstitial nephritis [Not Recovered/Not Resolved]

NARRATIVE: CASE EVENT DATE: 20130603
